FAERS Safety Report 25368245 (Version 2)
Quarter: 2025Q2

REPORT INFORMATION
  Report Type: Spontaneous
  Country: AU (occurrence: AU)
  Receive Date: 20250528
  Receipt Date: 20250617
  Transmission Date: 20250716
  Serious: Yes (Other)
  Sender: MYLAN
  Company Number: AU-MYLANLABS-2025M1042665

PATIENT
  Age: 51 Year
  Sex: Female

DRUGS (8)
  1. CLOZARIL [Suspect]
     Active Substance: CLOZAPINE
     Indication: Schizophrenia
     Dosage: 500 MILLIGRAM, PM (NOCTE)
     Dates: start: 20010920
  2. CLOZARIL [Suspect]
     Active Substance: CLOZAPINE
     Dosage: 400 MILLIGRAM, PM  (CONTINUED FOR FEW MONTHS)
  3. CLOZARIL [Suspect]
     Active Substance: CLOZAPINE
     Dosage: 500 MILLIGRAM, PM (NOCTE FOR MANY YEARS)
  4. CALTRATE [Concomitant]
     Active Substance: CALCIUM CARBONATE
     Dosage: 1 DOSAGE FORM, QD (1 TABLET DAILY)
  5. DIAZEPAM [Concomitant]
     Active Substance: DIAZEPAM
  6. FOLIC ACID [Concomitant]
     Active Substance: FOLIC ACID
     Dosage: 1 DOSAGE FORM, QD (1 TABLET DAILY)
  7. RAMIPRIL [Concomitant]
     Active Substance: RAMIPRIL
     Dosage: 1 DOSAGE FORM, QD (1 TABLET DAILY)
  8. VITAMIN D [Concomitant]
     Active Substance: VITAMIN D NOS
     Dosage: 2 DOSAGE FORM, BID (2 CAPSULE TWICE A DAY)

REACTIONS (12)
  - Mental impairment [Unknown]
  - Echocardiogram abnormal [Unknown]
  - Mean cell volume increased [Recovering/Resolving]
  - Haemoglobin decreased [Recovered/Resolved]
  - Red blood cell count decreased [Recovered/Resolved]
  - Haematocrit decreased [Recovered/Resolved]
  - Platelet count increased [Recovered/Resolved]
  - Eosinophil count decreased [Not Recovered/Not Resolved]
  - Basophil count decreased [Recovering/Resolving]
  - Red blood cell sedimentation rate increased [Unknown]
  - Neutrophil count increased [Recovered/Resolved]
  - Total cholesterol/HDL ratio increased [Not Recovered/Not Resolved]

NARRATIVE: CASE EVENT DATE: 20231003
